FAERS Safety Report 19934812 (Version 1)
Quarter: 2021Q4

REPORT INFORMATION
  Report Type: Spontaneous
  Country: US (occurrence: US)
  Receive Date: 20211008
  Receipt Date: 20211008
  Transmission Date: 20220303
  Serious: Yes (Death)
  Sender: FDA-Public Use
  Company Number: US-PFIZER INC-202101300422

PATIENT
  Age: 65 Year
  Sex: Female
  Weight: 48.08 kg

DRUGS (1)
  1. RAPAMUNE [Suspect]
     Active Substance: SIROLIMUS
     Indication: Lung transplant
     Dosage: 2 MG, 1X/DAY
     Route: 048
     Dates: start: 20130520

REACTIONS (4)
  - Death [Fatal]
  - Off label use [Unknown]
  - Intentional product misuse [Unknown]
  - Infection [Unknown]

NARRATIVE: CASE EVENT DATE: 20210101
